FAERS Safety Report 5390992-9 (Version None)
Quarter: 2007Q3

REPORT INFORMATION
  Report Type: 
  Country: None (occurrence: None)
  Receive Date: 20070710
  Receipt Date: 20060425
  Transmission Date: 20080115
  Serious: Yes (Hospitalization)
  Sender: FDA-Public Use
  Company Number: MPS1-10509

PATIENT
  Age: 3 Year
  Sex: Female
  Weight: 13.2 kg

DRUGS (1)
  1. ALDURAZYME [Suspect]
     Indication: MUCOPOLYSACCHARIDOSIS I
     Dosage: 8.7 MG QWK IV
     Route: 042
     Dates: start: 20040422

REACTIONS (5)
  - ACUTE RESPIRATORY DISTRESS SYNDROME [None]
  - CATHETER RELATED COMPLICATION [None]
  - HYPERGLYCAEMIA [None]
  - HYPERTENSION [None]
  - UPPER RESPIRATORY TRACT INFECTION [None]
